FAERS Safety Report 7416999-5 (Version None)
Quarter: 2011Q2

REPORT INFORMATION
  Report Type: 
  Country: None (occurrence: None)
  Receive Date: 20110415
  Receipt Date: 20110407
  Transmission Date: 20111010
  Serious: Yes (Other)
  Sender: FDA-Public Use
  Company Number: US-US-EMD SERONO, INC.-7053442

PATIENT
  Sex: Female

DRUGS (1)
  1. REBIF [Suspect]
     Indication: MULTIPLE SCLEROSIS
     Route: 058
     Dates: start: 20100408

REACTIONS (5)
  - FALL [None]
  - HAND FRACTURE [None]
  - MUSCULAR WEAKNESS [None]
  - NAUSEA [None]
  - DIZZINESS [None]
